FAERS Safety Report 9301072 (Version 1)
Quarter: 2013Q2

REPORT INFORMATION
  Report Type: Spontaneous
  Country: US (occurrence: US)
  Receive Date: 20130521
  Receipt Date: 20130521
  Transmission Date: 20140414
  Serious: Yes (Death)
  Sender: FDA-Public Use
  Company Number: US-GLAXOSMITHKLINE-A0697764A

PATIENT
  Age: 79 Year
  Sex: Male

DRUGS (4)
  1. AVANDIA [Suspect]
     Indication: TYPE 2 DIABETES MELLITUS
     Dosage: 4MG PER DAY
     Route: 048
     Dates: start: 1999, end: 200611
  2. PROCAN [Concomitant]
  3. LANOXIN [Concomitant]
  4. ALLOPURINOL [Concomitant]

REACTIONS (6)
  - Senile dementia [Fatal]
  - Cardiac failure congestive [Unknown]
  - Cerebrovascular accident [Unknown]
  - Fall [Unknown]
  - Head injury [Unknown]
  - Syncope [Unknown]
